FAERS Safety Report 21631643 (Version 1)
Quarter: 2022Q4

REPORT INFORMATION
  Report Type: Report from Study
  Country: US (occurrence: US)
  Receive Date: 20221123
  Receipt Date: 20221123
  Transmission Date: 20230113
  Serious: No
  Sender: FDA-Public Use
  Company Number: US-ABBVIE-22K-163-4409710-00

PATIENT
  Sex: Male

DRUGS (3)
  1. HUMIRA [Suspect]
     Active Substance: ADALIMUMAB
     Indication: Rheumatoid arthritis
     Dosage: FIRST ADMIN DATE OF THE PRODUCT:22 FEB 2022?CITRATE FREE?FORM STRENGTH: 40MG
     Route: 058
  2. PFIZER-BIONTECH COVID-19 VACCINE [Concomitant]
     Active Substance: TOZINAMERAN
     Indication: COVID-19 immunisation
     Dosage: FREQUENCY 1 IN ONCE ?COVID-19 VACCINE
     Route: 030
  3. PFIZER-BIONTECH COVID-19 VACCINE [Concomitant]
     Active Substance: TOZINAMERAN
     Indication: COVID-19 immunisation
     Dosage: FREQUENCY 1 IN ONCE ?COVID-19 VACCINE BOOSTER DOSE
     Route: 030

REACTIONS (7)
  - Carpal tunnel syndrome [Unknown]
  - Inflammation [Recovering/Resolving]
  - Cervical spinal stenosis [Unknown]
  - Sleep disorder [Recovering/Resolving]
  - Cervical radiculopathy [Unknown]
  - Joint noise [Recovering/Resolving]
  - Tinnitus [Unknown]

NARRATIVE: CASE EVENT DATE: 20220101
